FAERS Safety Report 12931668 (Version 1)
Quarter: 2016Q4

REPORT INFORMATION
  Report Type: Spontaneous
  Country: US (occurrence: US)
  Receive Date: 20161110
  Receipt Date: 20161110
  Transmission Date: 20170207
  Serious: Yes (Other)
  Sender: FDA-Public Use
  Company Number: US-GLENMARK PHARMACEUTICALS INC, USA.-2016GMK023829

PATIENT

DRUGS (1)
  1. OXCARBAZEPINE. [Suspect]
     Active Substance: OXCARBAZEPINE
     Indication: PRODUCT USED FOR UNKNOWN INDICATION
     Dosage: UNK, QID
     Route: 065
     Dates: start: 2015

REACTIONS (6)
  - Seizure [Unknown]
  - Speech disorder [Unknown]
  - Dizziness [Unknown]
  - Abasia [Unknown]
  - Disturbance in attention [Unknown]
  - Fatigue [Unknown]
